FAERS Safety Report 9308566 (Version 1)
Quarter: 2013Q2

REPORT INFORMATION
  Report Type: Spontaneous
  Country: CN (occurrence: CN)
  Receive Date: 20130524
  Receipt Date: 20130524
  Transmission Date: 20140414
  Serious: Yes (Other)
  Sender: FDA-Public Use
  Company Number: CN-JNJFOC-20130510996

PATIENT
  Age: 64 Year
  Sex: Male

DRUGS (1)
  1. DUROGESIC D-TRANS [Suspect]
     Indication: PAIN
     Dosage: 8.4 MG
     Route: 062
     Dates: start: 20121112, end: 20121114

REACTIONS (8)
  - Arrhythmia [Recovering/Resolving]
  - Oxygen saturation decreased [Recovering/Resolving]
  - Blood pressure decreased [Recovering/Resolving]
  - Coma [Recovering/Resolving]
  - PO2 decreased [Recovering/Resolving]
  - Breath sounds abnormal [Recovering/Resolving]
  - Pyrexia [Recovering/Resolving]
  - PCO2 decreased [Recovering/Resolving]
